FAERS Safety Report 5097989-7 (Version None)
Quarter: 2006Q3

REPORT INFORMATION
  Report Type: 
  Country: None (occurrence: None)
  Receive Date: 20060905
  Receipt Date: 20060823
  Transmission Date: 20061208
  Serious: No
  Sender: FDA-Public Use
  Company Number: 06H-114-0309691-00

PATIENT
  Age: 10 Day
  Sex: Male
  Weight: 1 kg

DRUGS (5)
  1. VANCOMYCIN HCL [Suspect]
     Indication: SEPSIS
     Dosage: SEE IMAGE
     Dates: start: 20060504, end: 20060510
  2. VANCOMYCIN HCL [Suspect]
     Indication: SEPSIS
     Dosage: SEE IMAGE
     Dates: start: 20060514, end: 20060518
  3. CEFTAZIDIM INJECTIEPOEDER FLACON (CEFTAZIDIME) [Concomitant]
  4. MEROPENEM INJECTIEPOEDER FLACON (MEROPENEM) [Concomitant]
  5. NYSTATINE LABAZ SUSPENSIE (NYSTATIN) [Concomitant]

REACTIONS (1)
  - METABOLIC ACIDOSIS [None]
